FAERS Safety Report 8729293 (Version 2)
Quarter: 2013Q3

REPORT INFORMATION
  Report Type: Spontaneous
  Country: US (occurrence: US)
  Receive Date: 20120817
  Receipt Date: 20130823
  Transmission Date: 20140515
  Serious: No
  Sender: FDA-Public Use
  Company Number: US-BRISTOL-MYERS SQUIBB COMPANY-16664187

PATIENT
  Age: 83 Year
  Sex: Female
  Weight: 58.96 kg

DRUGS (1)
  1. SPRYCEL [Suspect]
     Indication: CHRONIC MYELOID LEUKAEMIA
     Dosage: APPROX 6 MONTHS
     Route: 048

REACTIONS (1)
  - Nausea [Recovering/Resolving]
